FAERS Safety Report 8612357-6 (Version None)
Quarter: 2012Q3

REPORT INFORMATION
  Report Type: 
  Country: None (occurrence: None)
  Receive Date: 20120822
  Receipt Date: 20120814
  Transmission Date: 20120928
  Serious: Yes (Other)
  Sender: FDA-Public Use
  Company Number: DE-TEVA-354754GER

PATIENT
  Sex: Female
  Weight: 89 kg

DRUGS (6)
  1. FRAXIPARINA [Concomitant]
  2. CARBOPLATIN [Suspect]
     Indication: BREAST CANCER
     Route: 042
     Dates: start: 20120604, end: 20120702
  3. LAPATINIB [Suspect]
     Indication: BREAST CANCER
     Route: 048
     Dates: start: 20120604, end: 20120621
  4. NPLD (NON-PEGYLATED LIPOSOMAL DOXORUBICIN) [Suspect]
     Indication: BREAST CANCER
     Route: 042
     Dates: start: 20120604, end: 20120723
  5. PACLITAXEL [Suspect]
     Indication: BREAST CANCER
     Route: 042
     Dates: start: 20120604, end: 20120723
  6. TRASTUZUMAB [Suspect]
     Indication: BREAST CANCER
     Route: 042
     Dates: start: 20120604, end: 20120702

REACTIONS (2)
  - LIVER DISORDER [None]
  - ALANINE AMINOTRANSFERASE INCREASED [None]
